FAERS Safety Report 22124845 (Version 1)
Quarter: 2023Q1

REPORT INFORMATION
  Report Type: Spontaneous
  Country: FR (occurrence: FR)
  Receive Date: 20230322
  Receipt Date: 20230322
  Transmission Date: 20230418
  Serious: Yes (Other)
  Sender: FDA-Public Use
  Company Number: FR-BRISTOL-MYERS SQUIBB COMPANY-2023-040677

PATIENT
  Age: 78 Year

DRUGS (2)
  1. NIVOLUMAB [Suspect]
     Active Substance: NIVOLUMAB
     Indication: Pleural mesothelioma malignant
     Dosage: DOSE : NIVO 360 MG + IPI 1MG/KG;     FREQ : NIVO EVERY 3 WEEKS?IPI EVERY 6 WEEKS
  2. IPILIMUMAB [Suspect]
     Active Substance: IPILIMUMAB
     Indication: Pleural mesothelioma malignant
     Dosage: DOSE : NIVO 360 MG + IPI 1MG/KG;     FREQ : NIVO EVERY 3 WEEKS?IPI EVERY 6 WEEKS

REACTIONS (1)
  - Hepatotoxicity [Unknown]
